FAERS Safety Report 6793166-X (Version None)
Quarter: 2010Q2

REPORT INFORMATION
  Report Type: 
  Country: None (occurrence: None)
  Receive Date: 20100624
  Receipt Date: 20090629
  Transmission Date: 20101027
  Serious: Yes (Other)
  Sender: FDA-Public Use
  Company Number: US-MYLANLABS-2009S1011242

PATIENT
  Age: 52 Year
  Sex: Male

DRUGS (10)
  1. CLOZAPINE [Suspect]
     Indication: SCHIZOPHRENIA
     Dates: start: 20090604, end: 20090622
  2. ZOSYN [Concomitant]
  3. CLINDAMYCIN [Concomitant]
  4. HUMULIN R [Concomitant]
  5. METOPROLOL SUCCINATE [Concomitant]
  6. METFORMIN HCL [Concomitant]
  7. ABILIFY [Concomitant]
  8. LIPITOR [Concomitant]
  9. JANUVIA [Concomitant]
  10. ASPIRIN [Concomitant]

REACTIONS (2)
  - GRANULOCYTOPENIA [None]
  - LEUKOPENIA [None]
